FAERS Safety Report 17766429 (Version 1)
Quarter: 2020Q2

REPORT INFORMATION
  Report Type: Spontaneous
  Country: US (occurrence: US)
  Receive Date: 20200511
  Receipt Date: 20200511
  Transmission Date: 20200714
  Serious: Yes (Other)
  Sender: FDA-Public Use
  Company Number: None

PATIENT
  Age: 55 Year
  Sex: Female

DRUGS (3)
  1. CYCLOSPORINE. [Concomitant]
     Active Substance: CYCLOSPORINE
  2. HYDROXYCHLOROQUINE [Suspect]
     Active Substance: HYDROXYCHLOROQUINE
     Indication: CORONAVIRUS INFECTION
     Route: 048
     Dates: start: 20200322, end: 20200331
  3. GLIMEPERIDE [Concomitant]
     Active Substance: GLIMEPIRIDE

REACTIONS (3)
  - Diarrhoea [None]
  - Drug interaction [None]
  - Hypoglycaemia [None]

NARRATIVE: CASE EVENT DATE: 20200324
